FAERS Safety Report 14481998 (Version 2)
Quarter: 2018Q2

REPORT INFORMATION
  Report Type: Report from Study
  Country: CA (occurrence: CA)
  Receive Date: 20180202
  Receipt Date: 20180611
  Transmission Date: 20180711
  Serious: Yes (Hospitalization, Other)
  Sender: FDA-Public Use
  Company Number: CA-BRISTOL-MYERS SQUIBB COMPANY-BMS-2017-104078

PATIENT
  Sex: Male

DRUGS (1)
  1. ABATACEPT [Suspect]
     Active Substance: ABATACEPT
     Indication: RHEUMATOID ARTHRITIS
     Dosage: 125 MG, QWK
     Route: 058
     Dates: start: 20171010, end: 20180531

REACTIONS (5)
  - Upper limb fracture [Recovered/Resolved]
  - Pain [Recovering/Resolving]
  - Fall [Recovered/Resolved]
  - Discomfort [Recovering/Resolving]
  - Joint dislocation [Recovered/Resolved]
